FAERS Safety Report 6402055-1 (Version None)
Quarter: 2009Q4

REPORT INFORMATION
  Report Type: 
  Country: None (occurrence: None)
  Receive Date: 20091015
  Receipt Date: 20091012
  Transmission Date: 20100525
  Serious: Yes (Death)
  Sender: FDA-Public Use
  Company Number: US-BRISTOL-MYERS SQUIBB COMPANY-14701486

PATIENT
  Age: 42 Year
  Sex: Female

DRUGS (5)
  1. ABILIFY [Suspect]
     Indication: PSYCHOTIC DISORDER
  2. MOTRIN [Suspect]
     Indication: PAIN
     Dosage: 1DF=800(UNITS NOT SPECIFIED).
  3. TOPAMAX [Suspect]
     Indication: CONVULSION
  4. XANAX [Suspect]
     Indication: DEPRESSION
  5. LIDODERM [Suspect]
     Indication: PAIN

REACTIONS (3)
  - ACCIDENTAL DEATH [None]
  - DEATH [None]
  - DRUG TOXICITY [None]
